FAERS Safety Report 4803677-1 (Version None)
Quarter: 2005Q4

REPORT INFORMATION
  Report Type: 
  Country: None (occurrence: None)
  Receive Date: 20051014
  Receipt Date: 20051005
  Transmission Date: 20060501
  Serious: Yes (Other)
  Sender: FDA-Public Use
  Company Number: 2005-10-0203

PATIENT
  Age: 56 Year
  Sex: Female

DRUGS (4)
  1. DESLORATADINE (SCH 34117) TABLETS [Suspect]
     Indication: SEASONAL ALLERGY
     Dosage: 5 MG QD ORAL
     Route: 048
     Dates: start: 20020101
  2. CHLORPROMAZINE [Concomitant]
  3. FLUOXETINE [Concomitant]
  4. TEMAZEPAM [Concomitant]

REACTIONS (2)
  - HUMERUS FRACTURE [None]
  - SYNCOPE [None]
